FAERS Safety Report 4922676-2 (Version None)
Quarter: 2006Q1

REPORT INFORMATION
  Report Type: 
  Country: None (occurrence: None)
  Receive Date: 20060224
  Receipt Date: 20060214
  Transmission Date: 20060701
  Serious: Yes (Death, Hospitalization, Other)
  Sender: FDA-Public Use
  Company Number: US-ABBOTT-06P-163-0325458-00

PATIENT
  Age: 44 Year
  Sex: Male

DRUGS (10)
  1. RITONAVIR [Suspect]
     Indication: HIV INFECTION
     Dates: start: 20030801
  2. RITONAVIR [Suspect]
     Dates: start: 20040101
  3. ZIDOVUDINE [Suspect]
     Indication: HIV INFECTION
     Dates: start: 19980101, end: 19990101
  4. LAMIVUDINE [Suspect]
     Indication: HIV INFECTION
     Dates: start: 19980101
  5. LAMIVUDINE [Suspect]
     Dates: start: 20040101
  6. INDINIVIR SULFATE [Suspect]
     Indication: HIV INFECTION
     Dates: start: 19980101
  7. DIDANOSINE [Suspect]
     Indication: HIV INFECTION
     Dates: start: 19990101
  8. STAVUDINE [Suspect]
     Indication: HIV INFECTION
     Dates: start: 19990101
  9. TENOFOVIR [Suspect]
     Indication: HIV INFECTION
     Dates: start: 20040101
  10. ATAZANAVIR [Suspect]
     Indication: HIV INFECTION
     Dates: start: 20040101

REACTIONS (12)
  - CARDIAC ARREST [None]
  - DIARRHOEA [None]
  - DRUG TOXICITY [None]
  - DRY MOUTH [None]
  - EMBOLISM [None]
  - FATIGUE [None]
  - HERPES ZOSTER [None]
  - MYALGIA [None]
  - PYREXIA [None]
  - RESPIRATORY DISTRESS [None]
  - RETROVIRAL INFECTION [None]
  - WEIGHT DECREASED [None]
